FAERS Safety Report 12602053 (Version 3)
Quarter: 2016Q3

REPORT INFORMATION
  Report Type: Spontaneous
  Country: DK (occurrence: DK)
  Receive Date: 20160728
  Receipt Date: 20160927
  Transmission Date: 20161109
  Serious: Yes (Death, Life-Threatening, Other)
  Sender: FDA-Public Use
  Company Number: DK-TEVA-679722ISR

PATIENT
  Age: 36 Year
  Sex: Male
  Weight: 67 kg

DRUGS (4)
  1. MIRTAZAPINE. [Suspect]
     Active Substance: MIRTAZAPINE
     Indication: SCHIZOPHRENIA
     Dosage: 30 MG, PRESCRIBED FOR 6 MONTHS
     Dates: start: 200911
  2. ARIPIPRAZOLE. [Suspect]
     Active Substance: ARIPIPRAZOLE
     Indication: SCHIZOPHRENIA
     Dosage: 30 MG/DAY, PRESCRIBED FOR 6 MONTHS
     Dates: start: 200911
  3. OLANZAPINE. [Suspect]
     Active Substance: OLANZAPINE
     Indication: SCHIZOPHRENIA
     Dosage: 20 MG/DAY+ 5MG PRN PRESCRIBED ALMOST FOR 4 YEARS
  4. OLANZAPINE. [Suspect]
     Active Substance: OLANZAPINE
     Indication: SCHIZOPHRENIA
     Dates: start: 200606

REACTIONS (2)
  - Eosinophilic myocarditis [Fatal]
  - Overdose [Unknown]

NARRATIVE: CASE EVENT DATE: 201005
